FAERS Safety Report 8841335 (Version 2)
Quarter: 2012Q4

REPORT INFORMATION
  Report Type: 
  Country: GB (occurrence: GB)
  Receive Date: 20121015
  Receipt Date: 20121016
  Transmission Date: 20130627
  Serious: Yes (Hospitalization, Other)
  Sender: FDA-Public Use
  Company Number: GB-PFIZER INC-2012250317

PATIENT
  Age: 36 Year
  Sex: Male
  Weight: 60 kg

DRUGS (6)
  1. GENOTROPIN [Suspect]
     Indication: GROWTH HORMONE DEFICIENCY
     Dosage: 0.8 mg, 7-WK
     Route: 058
     Dates: start: 20040225
  2. EPILIM [Concomitant]
     Indication: CONVULSION
     Dosage: UNK
     Dates: start: 20021213
  3. DESMOPRESSIN [Concomitant]
     Indication: BLOOD ANTIDIURETIC HORMONE DECREASED
     Dosage: UNK
     Dates: start: 19880101
  4. TEGRETOL [Concomitant]
     Indication: EPILEPSY
     Dosage: UNK
     Dates: start: 20060705
  5. TEGRETOL [Concomitant]
     Indication: CONVULSION
  6. TEGRETOL [Concomitant]
     Indication: CONVULSION

REACTIONS (2)
  - Fall [Unknown]
  - Convulsion [Unknown]
